FAERS Safety Report 8786230 (Version 3)
Quarter: 2012Q4

REPORT INFORMATION
  Report Type: 
  Country: IT (occurrence: IT)
  Receive Date: 20120914
  Receipt Date: 20121012
  Transmission Date: 20130627
  Serious: Yes (Hospitalization, Other)
  Sender: FDA-Public Use
  Company Number: PHHY2012IT079727

PATIENT
  Age: 70 Year
  Sex: Female

DRUGS (7)
  1. ZOMETA [Suspect]
     Indication: PROPHYLAXIS
     Dosage: 4 mg,
     Route: 042
     Dates: start: 20110505, end: 20120717
  2. OMEPRAZOL [Concomitant]
     Dosage: 20 mg, UNK
     Route: 048
  3. CARDICOR [Concomitant]
     Dosage: 5 mg, UNK
     Route: 048
  4. CONTRAMAL [Concomitant]
     Dosage: 90 U, drops
  5. EUTIROX [Concomitant]
     Dosage: 50 ug, UNK
     Route: 048
  6. MEGACE [Concomitant]
     Dosage: 160 mg, UNK
     Route: 048
  7. SUTENT [Concomitant]
     Indication: RENAL CELL CARCINOMA
     Dosage: 50 mg, UNK
     Route: 048
     Dates: start: 20111021, end: 20120717

REACTIONS (2)
  - Osteonecrosis of jaw [Recovering/Resolving]
  - Sinusitis [Recovering/Resolving]
